FAERS Safety Report 4700595-4 (Version None)
Quarter: 2005Q2

REPORT INFORMATION
  Report Type: 
  Country: None (occurrence: None)
  Receive Date: 20050627
  Receipt Date: 20050620
  Transmission Date: 20051028
  Serious: Yes (Hospitalization)
  Sender: FDA-Public Use
  Company Number: 2004003028

PATIENT
  Age: 69 Year
  Sex: Female
  Weight: 57 kg

DRUGS (1)
  1. TAHOR (ATORVASTATIN) [Suspect]
     Indication: HYPERCHOLESTEROLAEMIA
     Dosage: 5 MG (DAILY), ORAL
     Route: 048
     Dates: end: 20030101

REACTIONS (3)
  - ROTATOR CUFF SYNDROME [None]
  - SHOULDER ARTHROPLASTY [None]
  - TENDON RUPTURE [None]
